FAERS Safety Report 9873672 (Version 1)
Quarter: 2014Q1

REPORT INFORMATION
  Report Type: Other
  Country: US (occurrence: US)
  Receive Date: 20140206
  Receipt Date: 20140206
  Transmission Date: 20141002
  Serious: No
  Sender: FDA-Public Use
  Company Number: US-ACORDA-ACO_34767_2013

PATIENT
  Age: 44 Year
  Sex: Female
  Weight: 49.89 kg

DRUGS (3)
  1. AMPYRA [Suspect]
     Dosage: 10 MG, BID
     Route: 048
     Dates: start: 20130119, end: 201302
  2. AMPYRA [Suspect]
     Dosage: 10 MG, QD
     Route: 048
     Dates: start: 201302, end: 201302
  3. AMPYRA [Suspect]
     Dosage: UNK
     Dates: start: 201302

REACTIONS (2)
  - Therapeutic response unexpected [Not Recovered/Not Resolved]
  - Therapeutic response unexpected [Not Recovered/Not Resolved]
